FAERS Safety Report 8362904-7 (Version None)
Quarter: 2012Q2

REPORT INFORMATION
  Report Type: 
  Country: None (occurrence: None)
  Receive Date: 20120516
  Receipt Date: 20120514
  Transmission Date: 20120825
  Serious: Yes (Other)
  Sender: FDA-Public Use
  Company Number: ZA-SANOFI-AVENTIS-2012SA033852

PATIENT
  Age: 77 Year
  Sex: Male

DRUGS (7)
  1. CLOPIDOGREL [Suspect]
     Route: 048
     Dates: start: 20120501, end: 20120512
  2. LOSARTAN POTASSIUM AND HYDROCHLOROTHIAZIDE [Concomitant]
     Route: 048
  3. SIMVASTATIN [Concomitant]
     Route: 048
  4. AMLODIPINE BESILATE [Concomitant]
     Route: 048
  5. BISOPROLOL FUMARATE [Concomitant]
     Route: 048
  6. CLOPIDOGREL [Suspect]
     Indication: ANTICOAGULANT THERAPY
     Route: 048
     Dates: start: 20120301, end: 20120401
  7. ASPIRIN [Concomitant]
     Route: 048

REACTIONS (6)
  - SKIN INFECTION [None]
  - HAEMATOCHEZIA [None]
  - PAIN [None]
  - TOXIC EPIDERMAL NECROLYSIS [None]
  - WOUND [None]
  - DERMATITIS BULLOUS [None]
